FAERS Safety Report 26139770 (Version 1)
Quarter: 2025Q4

REPORT INFORMATION
  Report Type: Spontaneous
  Country: US (occurrence: US)
  Receive Date: 20251210
  Receipt Date: 20251210
  Transmission Date: 20260118
  Serious: Yes (Other)
  Sender: DR REDDYS
  Company Number: None

PATIENT
  Age: 24 Year
  Sex: Male

DRUGS (3)
  1. PROGESTERONE [Suspect]
     Active Substance: PROGESTERONE
     Indication: Hormone therapy
     Dosage: FOR 10 MONTHS
  2. ESTRADIOL [Suspect]
     Active Substance: ESTRADIOL
     Indication: Hormone therapy
     Dosage: (ORAL TABLETS FOR 3 YEARS, THEN SWITCHED TO INTRAMUSCULAR (IM) INJECTIONS 1 YEAR PRIOR TO PRESENTATI
     Route: 048
  3. ESTRADIOL [Suspect]
     Active Substance: ESTRADIOL
     Dosage: (ORAL TABLETS FOR 3 YEARS, THEN SWITCHED TO INTRAMUSCULAR (IM) INJECTIONS 1 YEAR PRIOR TO PRESENTATI
     Route: 030

REACTIONS (1)
  - Phyllodes tumour [Unknown]
